FAERS Safety Report 17197920 (Version 1)
Quarter: 2019Q4

REPORT INFORMATION
  Report Type: Spontaneous
  Country: CN (occurrence: CN)
  Receive Date: 20191225
  Receipt Date: 20191225
  Transmission Date: 20200122
  Serious: Yes (Hospitalization)
  Sender: FDA-Public Use
  Company Number: CN-ROCHE-2501623

PATIENT
  Age: 46 Year
  Sex: Male
  Weight: 57 kg

DRUGS (6)
  1. PACLITAXEL LIPOSOME [Suspect]
     Active Substance: PACLITAXEL
     Indication: CANCER SURGERY
     Route: 041
     Dates: start: 20190913, end: 20190913
  2. CARBOPLATIN. [Suspect]
     Active Substance: CARBOPLATIN
     Indication: CANCER SURGERY
     Route: 041
     Dates: start: 20190913, end: 20190913
  3. GLUCOSE [Concomitant]
     Active Substance: DEXTROSE
     Dosage: SOLVENT FOR PACLITAXEL LIPOSOME FOR INJECTION
     Route: 041
     Dates: start: 20190913, end: 20190913
  4. GLUCOSE [Concomitant]
     Active Substance: DEXTROSE
     Dosage: SOLVENT FOR CARBOPLATIN FOR INJECTION
     Route: 041
     Dates: start: 20190913, end: 20190913
  5. AVASTIN [Suspect]
     Active Substance: BEVACIZUMAB
     Indication: CANCER SURGERY
     Route: 041
     Dates: start: 20190913, end: 20190913
  6. SODIUM CHLORIDE. [Concomitant]
     Active Substance: SODIUM CHLORIDE
     Dosage: SOLVENT FOR BEVACIZUMAB
     Route: 041
     Dates: start: 20190913, end: 20190913

REACTIONS (1)
  - Bone marrow failure [Recovering/Resolving]

NARRATIVE: CASE EVENT DATE: 20191005
